FAERS Safety Report 7788543-4 (Version None)
Quarter: 2011Q3

REPORT INFORMATION
  Report Type: 
  Country: None (occurrence: None)
  Receive Date: 20110928
  Receipt Date: 20110912
  Transmission Date: 20111222
  Serious: Yes (Other)
  Sender: FDA-Public Use
  Company Number: GGEL20110901350

PATIENT
  Age: 78 Year
  Sex: Female

DRUGS (3)
  1. ESCITALOPRAM [Concomitant]
  2. GABAPENTIN [Suspect]
     Indication: PAIN
     Dosage: 1200 MILLIGRAM, 2 IN 1 D
  3. GABAPENTIN [Suspect]
     Indication: NEUROPATHY PERIPHERAL
     Dosage: 1200 MILLIGRAM, 2 IN 1 D

REACTIONS (8)
  - OFF LABEL USE [None]
  - CONVULSION [None]
  - AFFECT LABILITY [None]
  - APHASIA [None]
  - MENTAL STATUS CHANGES [None]
  - CEREBRAL SMALL VESSEL ISCHAEMIC DISEASE [None]
  - THALAMIC INFARCTION [None]
  - CONFUSIONAL STATE [None]
